FAERS Safety Report 23061639 (Version 3)
Quarter: 2023Q4

REPORT INFORMATION
  Report Type: Report from Study
  Country: CL (occurrence: CL)
  Receive Date: 20231013
  Receipt Date: 20231116
  Transmission Date: 20240110
  Serious: Yes (Hospitalization, Other)
  Sender: FDA-Public Use
  Company Number: CL-NOVOPROD-1124295

PATIENT
  Age: 51 Year
  Sex: Male
  Weight: 97 kg

DRUGS (3)
  1. EMPAGLIFLOZIN\METFORMIN HYDROCHLORIDE [Concomitant]
     Active Substance: EMPAGLIFLOZIN\METFORMIN HYDROCHLORIDE
     Indication: Type 1 diabetes mellitus
     Dosage: 12.5 MG, QD
     Route: 048
     Dates: start: 202211
  2. INSULATARD NPH HUMAN [Suspect]
     Active Substance: INSULIN HUMAN
     Indication: Type 1 diabetes mellitus
     Dosage: 56 IU, QD (DOSE: 32 IU PM; 24 IU AM)
     Route: 058
     Dates: start: 2012
  3. OZEMPIC [Concomitant]
     Active Substance: SEMAGLUTIDE
     Indication: Product used for unknown indication
     Dosage: UNK

REACTIONS (5)
  - Diabetic retinopathy [Not Recovered/Not Resolved]
  - Myocardial infarction [Recovered/Resolved]
  - Diabetic metabolic decompensation [Recovered/Resolved]
  - Eye haemorrhage [Recovered/Resolved]
  - Eye haemorrhage [Recovered/Resolved]

NARRATIVE: CASE EVENT DATE: 20140101
